FAERS Safety Report 15282015 (Version 1)
Quarter: 2018Q3

REPORT INFORMATION
  Report Type: Spontaneous
  Country: JP (occurrence: JP)
  Receive Date: 20180815
  Receipt Date: 20180815
  Transmission Date: 20181010
  Serious: Yes (Other)
  Sender: FDA-Public Use
  Company Number: JP-SPECTRUM PHARMACEUTICALS, INC.-18-F-JP-00088

PATIENT
  Age: 20 Year
  Sex: Male

DRUGS (1)
  1. FOLOTYN [Suspect]
     Active Substance: PRALATREXATE
     Indication: ANAPLASTIC LARGE-CELL LYMPHOMA
     Dosage: 20 MG/M2, UNK
     Route: 042
     Dates: start: 20171214

REACTIONS (5)
  - Aspartate aminotransferase increased [Recovered/Resolved]
  - Malignant neoplasm progression [Unknown]
  - Liver disorder [Unknown]
  - Alanine aminotransferase increased [Recovered/Resolved]
  - Stomatitis [Unknown]

NARRATIVE: CASE EVENT DATE: 20171216
